FAERS Safety Report 9635262 (Version 1)
Quarter: 2013Q4

REPORT INFORMATION
  Report Type: Spontaneous
  Country: AU (occurrence: AU)
  Receive Date: 20131021
  Receipt Date: 20131021
  Transmission Date: 20140711
  Serious: Yes (Other)
  Sender: FDA-Public Use
  Company Number: AU-B.I. PHARMACEUTICALS,INC./RIDGEFIELD-2013-BI-31967AU

PATIENT
  Sex: Male

DRUGS (3)
  1. PRADAXA [Suspect]
  2. PRADAXA [Suspect]
  3. STEROIDS [Concomitant]

REACTIONS (1)
  - Deep vein thrombosis [Unknown]
